FAERS Safety Report 8211491-2 (Version None)
Quarter: 2012Q1

REPORT INFORMATION
  Report Type: 
  Country: None (occurrence: None)
  Receive Date: 20120315
  Receipt Date: 20120309
  Transmission Date: 20120608
  Serious: Yes (Congenital Anomaly)
  Sender: FDA-Public Use
  Company Number: FR-PFIZER INC-2012063049

PATIENT
  Sex: Female
  Weight: 2.79 kg

DRUGS (7)
  1. NEURONTIN [Suspect]
     Dosage: 800 MG/DAY
     Route: 064
     Dates: start: 20100601, end: 20100814
  2. ARIXTRA [Suspect]
     Dosage: UNK
     Route: 064
     Dates: start: 20100708, end: 20100815
  3. BACTRIM DS [Concomitant]
     Dosage: 2 TABLETS/DAY
     Route: 064
     Dates: start: 20100601, end: 20100803
  4. LAMICTAL [Concomitant]
     Dosage: 50 MG/DAY
     Route: 064
     Dates: start: 20100601, end: 20100731
  5. RIFADIN [Concomitant]
     Dosage: 600 MG/DAY
     Route: 064
     Dates: start: 20100601, end: 20100803
  6. NEURONTIN [Suspect]
     Dosage: 800 MG/DAY
     Route: 064
     Dates: start: 20100824, end: 20100910
  7. TRAMADOL HCL [Concomitant]
     Dosage: 200 MG/DAY
     Route: 064
     Dates: start: 20100601, end: 20100718

REACTIONS (3)
  - LIMB DEFORMITY [None]
  - MATERNAL EXPOSURE TIMING UNSPECIFIED [None]
  - CONGENITAL MUSCULOSKELETAL ANOMALY [None]
